FAERS Safety Report 8147481-8 (Version None)
Quarter: 2012Q1

REPORT INFORMATION
  Report Type: 
  Country: None (occurrence: None)
  Receive Date: 20120218
  Receipt Date: 20110215
  Transmission Date: 20120608
  Serious: No
  Sender: FDA-Public Use
  Company Number: US-ALLERGAN-1102200US

PATIENT
  Sex: Female

DRUGS (1)
  1. BOTOX COSMETIC [Suspect]
     Indication: SKIN WRINKLING
     Dosage: 28 UNITS, SINGLE
     Dates: start: 20110214, end: 20110214

REACTIONS (4)
  - HEART RATE INCREASED [None]
  - NAUSEA [None]
  - FLUSHING [None]
  - FEELING HOT [None]
